FAERS Safety Report 5502763-0 (Version None)
Quarter: 2007Q4

REPORT INFORMATION
  Report Type: 
  Country: None (occurrence: None)
  Receive Date: 20071031
  Receipt Date: 20071025
  Transmission Date: 20080405
  Serious: Yes (Congenital Anomaly)
  Sender: FDA-Public Use
  Company Number: US-BRISTOL-MYERS SQUIBB COMPANY-13376918

PATIENT
  Age: 1 Day
  Sex: Male

DRUGS (7)
  1. SUSTIVA [Suspect]
     Indication: HIV INFECTION
     Dosage: EXPOSURE DURING 3RD TRIMESTER
     Route: 064
  2. DIDANOSINE [Suspect]
     Indication: HIV INFECTION
     Dosage: EXPOSURE DURING 1, 2, 3 TRIMESTER
     Route: 064
  3. ZIDOVUDINE [Suspect]
     Indication: HIV INFECTION
     Dosage: EXPOSURE DURING 1ST THROUGH 3RD TRIMESTER
     Route: 064
  4. LAMIVUDINE [Suspect]
     Indication: HIV INFECTION
     Dosage: EXPOSURE DURING 1ST THROUGH 3RD TRIMESTER
     Route: 064
  5. NELFINAVIR [Suspect]
     Indication: HIV INFECTION
     Dosage: EXPOSURE DURING 1ST THROUGH 3RD TRIMESTER
     Route: 048
  6. RITONAVIR [Suspect]
     Indication: HIV INFECTION
     Dosage: EXPOSURE DURING 3RD TRIMESTER
     Route: 064
  7. BLINDED: INDINAVIR [Suspect]
     Indication: HIV INFECTION
     Route: 064

REACTIONS (3)
  - CHORDEE [None]
  - HYPOSPADIAS [None]
  - PREGNANCY [None]
